FAERS Safety Report 7537216-1 (Version None)
Quarter: 2011Q2

REPORT INFORMATION
  Report Type: 
  Country: None (occurrence: None)
  Receive Date: 20110609
  Receipt Date: 20110530
  Transmission Date: 20111010
  Serious: Yes (Hospitalization)
  Sender: FDA-Public Use
  Company Number: JP-EISAI INC-E3810-04501-SPO-JP

PATIENT
  Age: 69 Year
  Sex: Male
  Weight: 66 kg

DRUGS (9)
  1. MELOXICAM [Concomitant]
     Dates: start: 20050101, end: 20101101
  2. PREDNISOLONE [Suspect]
     Route: 048
     Dates: start: 20091215
  3. TRICHLORMETHIAZIDE [Suspect]
     Indication: HYPERTENSION
     Dates: start: 20050101
  4. DICLOFENAC SODIUM [Concomitant]
     Dates: start: 20091224, end: 20101101
  5. RABEPRAZOLE SODIUM [Suspect]
     Indication: PROPHYLAXIS
     Route: 048
     Dates: start: 20091214
  6. KETOPROFEN [Concomitant]
     Dates: start: 20091215
  7. ISONIAZID [Concomitant]
     Dates: start: 20100202, end: 20101104
  8. VALSARTAN [Suspect]
     Indication: HYPERTENSION
     Dates: start: 20050101
  9. AZELNIDIPINE [Suspect]
     Indication: HYPERTENSION
     Dates: start: 20050101

REACTIONS (2)
  - ALANINE AMINOTRANSFERASE INCREASED [None]
  - CHOLECYSTITIS CHRONIC [None]
